FAERS Safety Report 8204511-2 (Version None)
Quarter: 2012Q1

REPORT INFORMATION
  Report Type: 
  Country: None (occurrence: None)
  Receive Date: 20120313
  Receipt Date: 20120312
  Transmission Date: 20120608
  Serious: Yes (Other)
  Sender: FDA-Public Use
  Company Number: CA-BAYER-2012-024068

PATIENT
  Age: 38 Year
  Sex: Female

DRUGS (4)
  1. BETASERON [Suspect]
     Indication: PRODUCT USED FOR UNKNOWN INDICATION
     Dosage: 0.25 MG, UNK
     Dates: start: 20110930
  2. AMITRIPTYLINE HCL [Concomitant]
  3. IBUPROFEN [Concomitant]
     Dosage: AS NEEDED (PRN)
  4. ELIDEL [Concomitant]

REACTIONS (2)
  - COUGH [None]
  - LUNG INFECTION [None]
